FAERS Safety Report 4550108-5 (Version None)
Quarter: 2005Q1

REPORT INFORMATION
  Report Type: 
  Country: None (occurrence: None)
  Receive Date: 20050107
  Receipt Date: 20041230
  Transmission Date: 20050727
  Serious: No
  Sender: FDA-Public Use
  Company Number: 211418

PATIENT
  Age: 12 Year
  Sex: Male
  Weight: 58 kg

DRUGS (2)
  1. NUTROPIN [Suspect]
     Indication: PRADER-WILLI SYNDROME
     Dosage: SEE IMAGE
     Dates: start: 19951221, end: 20031203
  2. NUTROPIN [Suspect]
     Indication: PRADER-WILLI SYNDROME
     Dosage: SEE IMAGE
     Dates: start: 20040909

REACTIONS (6)
  - OBESITY [None]
  - OBSTRUCTIVE AIRWAYS DISORDER [None]
  - PROCEDURAL COMPLICATION [None]
  - SLEEP APNOEA SYNDROME [None]
  - TONSILLAR DISORDER [None]
  - TONSILLAR HYPERTROPHY [None]
